FAERS Safety Report 6404783-0 (Version None)
Quarter: 2009Q4

REPORT INFORMATION
  Report Type: 
  Country: None (occurrence: None)
  Receive Date: 20091016
  Receipt Date: 20091009
  Transmission Date: 20100525
  Serious: Yes (Other)
  Sender: FDA-Public Use
  Company Number: PHHO2009US12502

PATIENT
  Sex: Female
  Weight: 82 kg

DRUGS (1)
  1. RAD 666 RAD+TAB [Suspect]
     Indication: RENAL TRANSPLANT
     Dosage: 1.5 MG, BID
     Route: 048
     Dates: start: 19990526

REACTIONS (1)
  - SQUAMOUS CELL CARCINOMA OF SKIN [None]
